FAERS Safety Report 13903378 (Version 6)
Quarter: 2021Q2

REPORT INFORMATION
  Report Type: Spontaneous
  Country: US (occurrence: US)
  Receive Date: 20170824
  Receipt Date: 20210512
  Transmission Date: 20210716
  Serious: No
  Sender: FDA-Public Use
  Company Number: US-PFIZER INC-2017359242

PATIENT
  Age: 47 Year
  Sex: Female

DRUGS (4)
  1. LORAZEPAM. [Concomitant]
     Active Substance: LORAZEPAM
     Indication: ANXIETY
     Dosage: UNK
  2. IBRANCE [Suspect]
     Active Substance: PALBOCICLIB
     Indication: BREAST CANCER METASTATIC
     Dosage: 125 MG, CYCLIC (DAILY FOR 21 DAYS, THEN 1 WEEK OFF)
     Route: 048
     Dates: start: 20170805, end: 2017
  3. IBRANCE [Suspect]
     Active Substance: PALBOCICLIB
     Indication: RENAL CANCER
     Dosage: 125 MG, CYCLIC (DAILY FOR 21 DAYS, THEN 1 WEEK OFF/7 DAYS OFF)
     Route: 048
     Dates: start: 201709
  4. LETROZOLE. [Concomitant]
     Active Substance: LETROZOLE
     Dosage: UNK
     Dates: start: 20170805

REACTIONS (11)
  - Dyspnoea [Unknown]
  - Fatigue [Unknown]
  - Thirst [Unknown]
  - Insomnia [Unknown]
  - Pollakiuria [Unknown]
  - Anxiety [Unknown]
  - Peripheral swelling [Unknown]
  - Feeling abnormal [Unknown]
  - Product dose omission issue [Unknown]
  - Neoplasm recurrence [Unknown]
  - Nausea [Unknown]

NARRATIVE: CASE EVENT DATE: 201708
